FAERS Safety Report 9024943 (Version 1)
Quarter: 2013Q1

REPORT INFORMATION
  Report Type: Spontaneous
  Country: CA (occurrence: CA)
  Receive Date: 20130121
  Receipt Date: 20130121
  Transmission Date: 20140127
  Serious: Yes (Other)
  Sender: FDA-Public Use
  Company Number: CA-JNJFOC-20130108237

PATIENT
  Age: 67 Year
  Sex: Female
  Weight: 70.31 kg

DRUGS (2)
  1. NICORETTE [Suspect]
     Indication: EX-TOBACCO USER
     Route: 048
     Dates: start: 20030101
  2. THYROID [Concomitant]
     Route: 065
     Dates: start: 1996

REACTIONS (2)
  - Dependence [Not Recovered/Not Resolved]
  - Incorrect drug administration duration [Unknown]
